FAERS Safety Report 9979696 (Version 2)
Quarter: 2014Q1

REPORT INFORMATION
  Report Type: Report from Study
  Country: US (occurrence: US)
  Receive Date: 20140306
  Receipt Date: 20140306
  Transmission Date: 20141002
  Serious: No
  Sender: FDA-Public Use
  Company Number: US-ABBVIE-13P-163-1160782-00

PATIENT
  Age: 54 Year
  Sex: Female
  Weight: 63.56 kg

DRUGS (13)
  1. HUMIRA [Suspect]
     Indication: COLITIS ULCERATIVE
     Dates: start: 2011, end: 201302
  2. HUMIRA [Suspect]
     Indication: RHEUMATOID ARTHRITIS
     Dates: start: 201302, end: 201310
  3. HUMIRA [Suspect]
     Dates: start: 20131021
  4. HUMIRA [Suspect]
     Indication: COLITIS ULCERATIVE
     Dates: start: 2011, end: 201302
  5. HUMIRA [Suspect]
     Indication: RHEUMATOID ARTHRITIS
     Dates: start: 20131021
  6. METHOTREXATE [Concomitant]
     Indication: COLITIS ULCERATIVE
  7. METHOTREXATE [Concomitant]
     Indication: RHEUMATOID ARTHRITIS
  8. MULTIVITAMIN [Concomitant]
     Indication: VITAMIN SUPPLEMENTATION
  9. MAGNESIUM [Concomitant]
     Indication: MINERAL SUPPLEMENTATION
  10. VITAMIN D [Concomitant]
     Indication: VITAMIN SUPPLEMENTATION
  11. FOLIC ACID [Concomitant]
     Indication: VITAMIN SUPPLEMENTATION
  12. CALCIUM WITH VITAMIN D [Concomitant]
     Indication: MINERAL SUPPLEMENTATION
  13. CALCIUM WITH VITAMIN D [Concomitant]
     Indication: VITAMIN SUPPLEMENTATION

REACTIONS (4)
  - Mucous stools [Not Recovered/Not Resolved]
  - Haematochezia [Recovered/Resolved]
  - Colitis ulcerative [Not Recovered/Not Resolved]
  - Colitis [Unknown]
